FAERS Safety Report 19249253 (Version 1)
Quarter: 2021Q2

REPORT INFORMATION
  Report Type: Spontaneous
  Country: US (occurrence: US)
  Receive Date: 20210512
  Receipt Date: 20210512
  Transmission Date: 20210717
  Serious: Yes (Other)
  Sender: FDA-Public Use
  Company Number: US-UCBSA-2020045480

PATIENT
  Sex: Female

DRUGS (1)
  1. CIMZIA [Suspect]
     Active Substance: CERTOLIZUMAB PEGOL
     Indication: RHEUMATOID ARTHRITIS
     Dosage: UNK
     Dates: end: 2018

REACTIONS (10)
  - Localised infection [Unknown]
  - Urinary tract infection [Unknown]
  - Herpes zoster [Unknown]
  - Arthritis infective [Unknown]
  - Infection [Unknown]
  - Escherichia infection [Unknown]
  - Cellulitis [Unknown]
  - Sepsis [Unknown]
  - Injection site infection [Unknown]
  - Pneumonia [Unknown]
